FAERS Safety Report 14170320 (Version 4)
Quarter: 2020Q1

REPORT INFORMATION
  Report Type: Report from Study
  Country: JP (occurrence: JP)
  Receive Date: 20171108
  Receipt Date: 20200120
  Transmission Date: 20200409
  Serious: No
  Sender: FDA-Public Use
  Company Number: JP-ACTELION-A-CH2017-156588

PATIENT
  Age: 41 Year
  Sex: Female

DRUGS (10)
  1. SINGULAIR [Concomitant]
     Active Substance: MONTELUKAST SODIUM
  2. OPSUMIT [Suspect]
     Active Substance: MACITENTAN
     Indication: PULMONARY ARTERIAL HYPERTENSION
     Dosage: 10 MG, QD
     Route: 048
     Dates: start: 20160823
  3. ASPARA POTASSIUM [Concomitant]
     Active Substance: POTASSIUM ASPARTATE
  4. REVATIO [Concomitant]
     Active Substance: SILDENAFIL CITRATE
  5. ADOAIR [Concomitant]
     Active Substance: FLUTICASONE PROPIONATE\SALMETEROL XINAFOATE
  6. BERASUS [Concomitant]
     Active Substance: BERAPROST SODIUM
  7. SLOW-K [Concomitant]
     Active Substance: POTASSIUM CHLORIDE
  8. LASIX [Concomitant]
     Active Substance: FUROSEMIDE
  9. FERROMIA [Concomitant]
     Active Substance: SODIUM FERROUS CITRATE
  10. FEBURIC [Concomitant]
     Active Substance: FEBUXOSTAT

REACTIONS (5)
  - Blood bilirubin increased [Recovering/Resolving]
  - Concomitant disease aggravated [Recovering/Resolving]
  - Gamma-glutamyltransferase increased [Recovering/Resolving]
  - Aspartate aminotransferase increased [Recovering/Resolving]
  - Hepatic function abnormal [Recovering/Resolving]

NARRATIVE: CASE EVENT DATE: 201610
